FAERS Safety Report 9816176 (Version 2)
Quarter: 2014Q1

REPORT INFORMATION
  Report Type: Spontaneous
  Country: US (occurrence: US)
  Receive Date: 20140114
  Receipt Date: 20140131
  Transmission Date: 20141002
  Serious: No
  Sender: FDA-Public Use
  Company Number: US-PFIZER INC-2014006305

PATIENT
  Age: 85 Year
  Sex: Female

DRUGS (4)
  1. NITROFURANTOIN [Suspect]
     Dosage: UNK, 2X/DAY
  2. DETROL LA [Interacting]
     Dosage: UNK
  3. MAGNESIUM [Concomitant]
     Dosage: UNK
  4. CALCIUM [Concomitant]
     Dosage: UNK

REACTIONS (12)
  - Lung disorder [Unknown]
  - Nocturia [Unknown]
  - Urinary incontinence [Unknown]
  - Thinking abnormal [Unknown]
  - Skin irritation [Unknown]
  - Constipation [Unknown]
  - Drug ineffective [Unknown]
  - Drug interaction [Unknown]
  - Speech disorder [Unknown]
  - Mood swings [Unknown]
  - Drug intolerance [Unknown]
  - Infection [Unknown]
